FAERS Safety Report 4761052-2 (Version None)
Quarter: 2005Q3

REPORT INFORMATION
  Report Type: 
  Country: None (occurrence: None)
  Receive Date: 20050901
  Receipt Date: 20050817
  Transmission Date: 20060218
  Serious: Yes (Other)
  Sender: FDA-Public Use
  Company Number: FR-2005-017000

PATIENT
  Age: 18 Year
  Sex: Female

DRUGS (1)
  1. JASMINE (DROSPIRENONE, ETHINYLESTRADIOL) FILM TABLET [Suspect]
     Indication: ORAL CONTRACEPTION
     Dosage: 1 TAB(S),21D/28, ORAL
     Route: 048
     Dates: start: 20050201

REACTIONS (2)
  - EPILEPSY [None]
  - THERAPEUTIC RESPONSE DECREASED [None]
